FAERS Safety Report 6171732-2 (Version None)
Quarter: 2009Q2

REPORT INFORMATION
  Report Type: 
  Country: None (occurrence: None)
  Receive Date: 20090429
  Receipt Date: 20090427
  Transmission Date: 20091009
  Serious: Yes (Death)
  Sender: FDA-Public Use
  Company Number: B0571894A

PATIENT
  Sex: Male

DRUGS (8)
  1. REQUIP [Suspect]
     Indication: PARKINSON'S DISEASE
     Route: 048
     Dates: start: 20080927, end: 20090319
  2. FUROSEMIDE [Suspect]
     Indication: DRUG USE FOR UNKNOWN INDICATION
     Route: 048
  3. PAXIL [Concomitant]
     Indication: DEPRESSION
     Route: 048
  4. DEPAS [Concomitant]
     Indication: DEPRESSION
     Route: 048
  5. WARFARIN [Concomitant]
     Indication: CEREBRAL INFARCTION
     Route: 048
  6. ASPENON [Concomitant]
     Indication: ATRIAL FIBRILLATION
     Route: 048
  7. MAGLAX [Concomitant]
     Route: 048
  8. EPLERENONE [Concomitant]
     Route: 048

REACTIONS (1)
  - CARDIAC FAILURE [None]
